FAERS Safety Report 18319131 (Version 1)
Quarter: 2020Q3

REPORT INFORMATION
  Report Type: Spontaneous
  Country: US (occurrence: US)
  Receive Date: 20200928
  Receipt Date: 20200928
  Transmission Date: 20201103
  Serious: No
  Sender: FDA-Public Use
  Company Number: None

PATIENT
  Age: 57 Year
  Sex: Female
  Weight: 125.64 kg

DRUGS (13)
  1. GABAPENTIN 300MG [Concomitant]
     Active Substance: GABAPENTIN
  2. VOLTAREN [Concomitant]
     Active Substance: DICLOFENAC SODIUM
  3. CALCIUM 500 + D [Concomitant]
     Active Substance: CALCIUM\VITAMIN D
  4. ALLEGRA ALLERGY 180MG [Concomitant]
  5. LASIX 20MG [Concomitant]
  6. RESTASIS MULTIDOSE 0.05% [Concomitant]
  7. LISINOPRIL. [Concomitant]
     Active Substance: LISINOPRIL
  8. FOLIC ACID 1MG [Concomitant]
     Active Substance: FOLIC ACID
  9. ZINC?C?B6 15?60?5MG [Concomitant]
  10. HYDROXYZINE 25MG [Concomitant]
  11. IMATINIB. [Suspect]
     Active Substance: IMATINIB MESYLATE
     Indication: CHRONIC MYELOID LEUKAEMIA
     Route: 048
     Dates: start: 20190206
  12. MULTIVITAMIN [Concomitant]
     Active Substance: VITAMINS
  13. METOPROLOL TARTRATE. [Concomitant]
     Active Substance: METOPROLOL TARTRATE

REACTIONS (1)
  - Diarrhoea [None]

NARRATIVE: CASE EVENT DATE: 20200928
